FAERS Safety Report 7716759-1 (Version None)
Quarter: 2011Q3

REPORT INFORMATION
  Report Type: 
  Country: None (occurrence: None)
  Receive Date: 20110829
  Receipt Date: 20110819
  Transmission Date: 20111222
  Serious: Yes (Hospitalization, Other)
  Sender: FDA-Public Use
  Company Number: DE-ABBOTT-11P-062-0842368-00

PATIENT
  Sex: Female

DRUGS (24)
  1. DUODOPA GEL [Suspect]
     Dosage: BOLUS QUANTITY AS REQUIRED: 0.5ML; 10MG
  2. CLOZAPINE [Concomitant]
     Indication: PRODUCT USED FOR UNKNOWN INDICATION
     Dosage: AT NIGHT
  3. DUODOPA GEL [Suspect]
     Dosage: MORNING DOSE: 4.6ML
  4. DUODOPA GEL [Suspect]
     Dosage: BASAL RATE (DAY): 3.4ML/H; 68MG/H
  5. DUODOPA GEL [Suspect]
     Dosage: BASAL RATE (NIGHT): 1.5ML/H; 30MG/H
  6. KEPPRA [Concomitant]
     Indication: PRODUCT USED FOR UNKNOWN INDICATION
     Dosage: 1 IN THE MORNING, 1.5 AT NIGHT
  7. MOTILIUM [Concomitant]
     Indication: PRODUCT USED FOR UNKNOWN INDICATION
     Dosage: 2 ML/DROP, 1 IN MORNING, NOON + EVENING
  8. NEXIUM [Concomitant]
     Indication: PRODUCT USED FOR UNKNOWN INDICATION
     Dosage: IN THE EVENING
  9. MADOPAR [Concomitant]
     Indication: PRODUCT USED FOR UNKNOWN INDICATION
     Dosage: MORNING, NOON AND EVENING
  10. VALPROATE SODIUM [Suspect]
     Dosage: REDUCED
  11. NEXIUM [Concomitant]
     Indication: PRODUCT USED FOR UNKNOWN INDICATION
     Dosage: IN THE MORNING
  12. MIDAZOLAN (FRACTIONATED) [Concomitant]
     Indication: ENDOSCOPY UPPER GASTROINTESTINAL TRACT
     Route: 042
     Dates: start: 20110407, end: 20110407
  13. ACETYLCYSTEINE [Concomitant]
     Indication: PRODUCT USED FOR UNKNOWN INDICATION
     Dosage: IN THE MORNING
  14. MADOPAR [Concomitant]
     Dosage: DOSAGE INCREASED
  15. SODIUM CHLORIDE [Concomitant]
     Indication: PRODUCT USED FOR UNKNOWN INDICATION
     Dosage: 2 TABS IN MORNING, NOON + EVENING
  16. NACOM [Concomitant]
     Indication: PRODUCT USED FOR UNKNOWN INDICATION
     Dosage: AT NIGHT
  17. VALPROATE SODIUM [Suspect]
     Indication: PRODUCT USED FOR UNKNOWN INDICATION
  18. ASPIRIN [Concomitant]
     Indication: PRODUCT USED FOR UNKNOWN INDICATION
     Dosage: IN THE MORNING
  19. ASCORBIC ACID [Concomitant]
     Indication: PRODUCT USED FOR UNKNOWN INDICATION
     Dosage: IN THE MORNING
  20. ENOXAPARIN SODIUM [Concomitant]
     Indication: PRODUCT USED FOR UNKNOWN INDICATION
     Route: 058
  21. DUODOPA GEL [Suspect]
     Indication: PARKINSON'S DISEASE
     Dosage: ROUTE: JEJUNAL. 1458MG OVER 24 HRS
     Dates: start: 20110407
  22. TORSEMIDE [Concomitant]
     Indication: PRODUCT USED FOR UNKNOWN INDICATION
     Dosage: IN THE MORNING
  23. VITAMIN B COMPLEX CAP [Concomitant]
     Indication: PRODUCT USED FOR UNKNOWN INDICATION
     Dosage: 1 IN THE MORNING, 1 IN THE EVENING
  24. SIMAVASTATIN [Concomitant]
     Indication: PRODUCT USED FOR UNKNOWN INDICATION
     Dosage: IN THE EVENING

REACTIONS (42)
  - DEMENTIA [None]
  - ARTHRALGIA [None]
  - JOINT SWELLING [None]
  - URINARY TRACT INFECTION [None]
  - URINARY INCONTINENCE [None]
  - DEVICE DISLOCATION [None]
  - PARKINSON'S DISEASE [None]
  - WRIST FRACTURE [None]
  - FAECAL INCONTINENCE [None]
  - AGITATION [None]
  - MITRAL VALVE INCOMPETENCE [None]
  - DIARRHOEA [None]
  - SINUSITIS [None]
  - MOBILITY DECREASED [None]
  - GAIT DISTURBANCE [None]
  - JOINT DISLOCATION [None]
  - CEREBRAL CALCIFICATION [None]
  - CEREBRAL ATROPHY [None]
  - TOXIC ENCEPHALOPATHY [None]
  - LIPOMA [None]
  - ORAL CANDIDIASIS [None]
  - CARDIOVASCULAR DISORDER [None]
  - NOCTURNAL DYSPNOEA [None]
  - AORTIC VALVE INCOMPETENCE [None]
  - RESPIRATORY FAILURE [None]
  - DRUG INTOLERANCE [None]
  - AORTIC CALCIFICATION [None]
  - PNEUMONIA ASPIRATION [None]
  - TRICUSPID VALVE INCOMPETENCE [None]
  - OXYGEN SATURATION DECREASED [None]
  - DYSPHAGIA [None]
  - NEURODEGENERATIVE DISORDER [None]
  - GENERAL PHYSICAL HEALTH DETERIORATION [None]
  - CARDIOMEGALY [None]
  - BRAIN STEM STROKE [None]
  - STATUS EPILEPTICUS [None]
  - HYPERTENSION [None]
  - CLOSTRIDIUM DIFFICILE COLITIS [None]
  - AKATHISIA [None]
  - JOINT STIFFNESS [None]
  - CEREBELLAR ATROPHY [None]
  - OSTEOPOROSIS [None]
